FAERS Safety Report 12884996 (Version 9)
Quarter: 2017Q1

REPORT INFORMATION
  Report Type: Spontaneous
  Country: US (occurrence: US)
  Receive Date: 20161026
  Receipt Date: 20170317
  Transmission Date: 20170428
  Serious: Yes (Hospitalization, Congenital Anomaly, Other)
  Sender: FDA-Public Use
  Company Number: PHEH2016US027083

PATIENT
  Sex: Male

DRUGS (2)
  1. ZOFRAN [Suspect]
     Active Substance: ONDANSETRON HYDROCHLORIDE
     Indication: FOETAL EXPOSURE DURING PREGNANCY
     Dosage: MOTHER^S DOSE: 4 MG, PRN
     Route: 064
  2. ZOFRAN ODT [Suspect]
     Active Substance: ONDANSETRON HYDROCHLORIDE
     Indication: FOETAL EXPOSURE DURING PREGNANCY
     Dosage: MOTHER^S DOSE: 08 MG, ONCE DAILY (QD)
     Route: 064

REACTIONS (44)
  - Pulmonary embolism [Unknown]
  - Hypoxia [Unknown]
  - Hyperhidrosis [Unknown]
  - Cough [Unknown]
  - Mitral valve hypoplasia [Unknown]
  - Talipes [Unknown]
  - Pleural effusion [Unknown]
  - Atrioventricular block second degree [Unknown]
  - Hypoplastic left heart syndrome [Unknown]
  - Cardiac failure congestive [Unknown]
  - Deafness [Unknown]
  - Abdominal discomfort [Unknown]
  - Sinusitis [Unknown]
  - Pharyngitis streptococcal [Unknown]
  - Pyrexia [Unknown]
  - Endocardial fibroelastosis [Unknown]
  - Gastrostomy tube site complication [Unknown]
  - Failure to thrive [Unknown]
  - Lactic acidosis [Unknown]
  - Developmental delay [Unknown]
  - Aortic valve atresia [Unknown]
  - Congenital torticollis [Unknown]
  - Pericardial effusion [Unknown]
  - Paralysis [Unknown]
  - Aorta hypoplasia [Unknown]
  - Right atrial enlargement [Unknown]
  - Respiratory distress [Unknown]
  - Right ventricular dysfunction [Unknown]
  - Injury [Unknown]
  - Paronychia [Unknown]
  - Congenital mitral valve stenosis [Unknown]
  - Heart disease congenital [Unknown]
  - Tricuspid valve incompetence [Unknown]
  - Hypertension [Unknown]
  - Atrial septal defect [Unknown]
  - Coarctation of the aorta [Unknown]
  - Foetal exposure during pregnancy [Unknown]
  - Hepatomegaly [Unknown]
  - Venous thrombosis [Unknown]
  - Tachycardia [Unknown]
  - Gastrooesophageal reflux disease [Unknown]
  - Feeding disorder [Unknown]
  - Nasal congestion [Unknown]
  - Dermatitis contact [Unknown]
